FAERS Safety Report 16443331 (Version 1)
Quarter: 2019Q2

REPORT INFORMATION
  Report Type: Spontaneous
  Country: GB (occurrence: GB)
  Receive Date: 20190618
  Receipt Date: 20190618
  Transmission Date: 20190711
  Serious: Yes (Other)
  Sender: FDA-Public Use
  Company Number: GB-CONCORDIA PHARMACEUTICALS INC.-E2B_00019991

PATIENT
  Age: 60 Year
  Sex: Female

DRUGS (2)
  1. PREDNISOLONE. [Suspect]
     Active Substance: PREDNISOLONE
     Indication: ARTHRITIS
     Dosage: ACCORD-UK PREDNISOLONE
     Route: 048
     Dates: start: 20190508, end: 20190510
  2. NEXIUM [Concomitant]
     Active Substance: ESOMEPRAZOLE MAGNESIUM

REACTIONS (10)
  - Hypoaesthesia oral [Recovered/Resolved]
  - Disorientation [Recovered/Resolved]
  - Throat tightness [Recovered/Resolved]
  - Toothache [Recovered/Resolved]
  - Hypoaesthesia [Recovered/Resolved]
  - Reaction to excipient [Unknown]
  - Tremor [Recovered/Resolved]
  - Cough [Recovered/Resolved]
  - Dizziness [Recovered/Resolved]
  - Product substitution issue [Unknown]

NARRATIVE: CASE EVENT DATE: 20190508
